FAERS Safety Report 10186292 (Version 1)
Quarter: 2014Q2

REPORT INFORMATION
  Report Type: Spontaneous
  Country: US (occurrence: US)
  Receive Date: 20140521
  Receipt Date: 20140521
  Transmission Date: 20141212
  Serious: Yes (Hospitalization)
  Sender: FDA-Public Use
  Company Number: US-ACTAVIS-2014-10635

PATIENT
  Age: 69 Year
  Sex: Male

DRUGS (9)
  1. CYCLOPHOSPHAMIDE (UNKNOWN) [Suspect]
     Indication: MANTLE CELL LYMPHOMA STAGE III
     Dosage: UNKNOWN
     Route: 065
  2. VINCRISTINE (UNKNOWN) [Suspect]
     Indication: MANTLE CELL LYMPHOMA STAGE III
     Dosage: UNKNOWN
     Route: 065
  3. DOXORUBICIN (UNKNOWN) [Suspect]
     Indication: MANTLE CELL LYMPHOMA STAGE III
     Dosage: UNKNOWN
     Route: 065
  4. DEXAMETHASONE (WATSON LABORATORIES) [Suspect]
     Indication: MANTLE CELL LYMPHOMA STAGE III
     Dosage: UNKNOWN
     Route: 065
  5. METHOTREXATE (UNKNOWN) [Suspect]
     Indication: MANTLE CELL LYMPHOMA STAGE III
     Dosage: UNKNOWN
     Route: 065
  6. ETOPOSIDE (WATSON LABORATORIES) [Suspect]
     Indication: MANTLE CELL LYMPHOMA STAGE III
     Dosage: UNKNOWN
     Route: 065
  7. RITUXIMAB [Suspect]
     Indication: MANTLE CELL LYMPHOMA STAGE III
     Dosage: UNKNOWN
     Route: 065
  8. CYTARABINE [Suspect]
     Indication: MANTLE CELL LYMPHOMA STAGE III
     Dosage: UNKNOWN
     Route: 065
  9. BUSULFAN [Suspect]
     Indication: MANTLE CELL LYMPHOMA STAGE III
     Dosage: UNKNOWN
     Route: 065

REACTIONS (6)
  - Klebsiella sepsis [Recovered/Resolved]
  - Bacterial sepsis [Recovered/Resolved]
  - Lactobacillus infection [Recovered/Resolved]
  - Leukopenia [Unknown]
  - Mucosal inflammation [Unknown]
  - Colitis [Unknown]
